FAERS Safety Report 8779921 (Version 2)
Quarter: 2013Q1

REPORT INFORMATION
  Report Type: Report from Study
  Country: US (occurrence: US)
  Receive Date: 20120912
  Receipt Date: 20130207
  Transmission Date: 20140127
  Serious: No
  Sender: FDA-Public Use
  Company Number: US-VERTEX PHARMACEUTICAL INC.-AE-2012-005117

PATIENT
  Age: 67 None
  Sex: Male

DRUGS (4)
  1. VX-950 (TELAPREVIR) [Suspect]
     Indication: HEPATITIS C
     Dosage: UNK
     Route: 048
     Dates: start: 20120106, end: 20120330
  2. PEGASYS [Suspect]
     Indication: HEPATITIS C
     Dosage: 180 ?G, UNK
     Route: 058
     Dates: start: 20120106, end: 20121206
  3. RIBAVIRIN [Suspect]
     Indication: HEPATITIS C
     Dosage: 1200 MG, QD
     Route: 048
     Dates: start: 20120106, end: 20120305
  4. RIBAVIRIN [Suspect]
     Dosage: 800 MG, QD
     Route: 048
     Dates: start: 20120306, end: 20121206

REACTIONS (5)
  - Depression [Not Recovered/Not Resolved]
  - Asthenia [Not Recovered/Not Resolved]
  - Drug ineffective [Not Recovered/Not Resolved]
  - Anaemia [Not Recovered/Not Resolved]
  - Pruritus [Not Recovered/Not Resolved]
